FAERS Safety Report 4719241-9 (Version None)
Quarter: 2005Q3

REPORT INFORMATION
  Report Type: 
  Country: None (occurrence: None)
  Receive Date: 20050719
  Receipt Date: 20050705
  Transmission Date: 20060218
  Serious: Yes (Life-Threatening, Hospitalization)
  Sender: FDA-Public Use
  Company Number: SUS1-2005-00497

PATIENT
  Age: 32 Year
  Sex: Male

DRUGS (4)
  1. PENTASA [Suspect]
     Indication: COLITIS ULCERATIVE
     Dosage: 750; 500 MG, 3X/DAY:TID, ORAL
     Route: 048
     Dates: start: 20050301, end: 20050526
  2. PENTASA [Suspect]
     Indication: COLITIS ULCERATIVE
     Dosage: 750; 500 MG, 3X/DAY:TID, ORAL
     Route: 048
     Dates: start: 20050527, end: 20050607
  3. POLYCARBOPHIL (POLYCARBOPHIL) [Concomitant]
  4. FAMOTIDINE [Concomitant]

REACTIONS (6)
  - CARDIOMEGALY [None]
  - COLITIS ULCERATIVE [None]
  - CONDITION AGGRAVATED [None]
  - PERICARDITIS [None]
  - PLEURAL EFFUSION [None]
  - PLEURISY [None]
